FAERS Safety Report 4812120-8 (Version None)
Quarter: 2005Q4

REPORT INFORMATION
  Report Type: 
  Country: None (occurrence: None)
  Receive Date: 20051028
  Receipt Date: 20040312
  Transmission Date: 20060501
  Serious: No
  Sender: FDA-Public Use
  Company Number: US-GLAXOSMITHKLINE-A0502590A

PATIENT
  Age: 85 Year
  Sex: Male

DRUGS (6)
  1. ADVAIR DISKUS 100/50 [Suspect]
     Indication: ASTHMA
     Dosage: 1PUFF TWICE PER DAY
     Route: 055
     Dates: start: 20040227, end: 20040311
  2. ALBUTEROL [Concomitant]
  3. ATROVENT [Concomitant]
  4. UNKNOWN MEDICATION [Concomitant]
     Indication: HYPERTENSION
  5. COUMADIN [Concomitant]
  6. ASPIRIN [Concomitant]

REACTIONS (2)
  - DRUG INEFFECTIVE [None]
  - PHARYNGOLARYNGEAL PAIN [None]
